FAERS Safety Report 8308801-4 (Version None)
Quarter: 2012Q2

REPORT INFORMATION
  Report Type: 
  Country: None (occurrence: None)
  Receive Date: 20120424
  Receipt Date: 20101227
  Transmission Date: 20120825
  Serious: Yes (Other)
  Sender: FDA-Public Use
  Company Number: US-TEVA-2010006598

PATIENT
  Sex: Male
  Weight: 83.99 kg

DRUGS (5)
  1. NORTRIPTYLINE HCL [Concomitant]
     Indication: BACK PAIN
  2. NORTRIPTYLINE HCL [Concomitant]
     Indication: DEPRESSION
  3. MULTI-VITAMIN [Concomitant]
  4. IRON PILL [Concomitant]
     Indication: ANAEMIA
  5. PROVIGIL [Suspect]
     Indication: NARCOLEPSY
     Route: 048
     Dates: start: 20080101, end: 20080101

REACTIONS (1)
  - HALLUCINATION [None]
